FAERS Safety Report 6172350-2 (Version None)
Quarter: 2009Q2

REPORT INFORMATION
  Report Type: 
  Country: None (occurrence: None)
  Receive Date: 20090429
  Receipt Date: 20090417
  Transmission Date: 20091009
  Serious: Yes (Death, Life-Threatening)
  Sender: FDA-Public Use
  Company Number: CH-PFIZER INC-2009199504

PATIENT

DRUGS (8)
  1. XANAX [Suspect]
     Dosage: UNK
     Route: 048
     Dates: start: 20081001, end: 20081103
  2. XANAX [Suspect]
     Dosage: UNK
     Route: 048
     Dates: start: 20081104
  3. HALCION [Suspect]
     Dosage: UNK
     Route: 048
     Dates: start: 20081104
  4. TRITTICO [Suspect]
     Dosage: UNK
     Route: 048
     Dates: start: 20080701, end: 20081109
  5. TRITTICO [Suspect]
     Dosage: UNK
     Route: 048
     Dates: start: 20081110, end: 20081111
  6. TRITTICO [Suspect]
     Dosage: UNK
     Route: 048
     Dates: start: 20081112, end: 20081112
  7. REMERON [Suspect]
     Dosage: UNK
     Route: 048
     Dates: start: 20081111, end: 20081111
  8. REMERON [Suspect]
     Dosage: UNK
     Route: 048
     Dates: start: 20081112

REACTIONS (1)
  - COMPLETED SUICIDE [None]
